FAERS Safety Report 25450278 (Version 2)
Quarter: 2025Q3

REPORT INFORMATION
  Report Type: Report from Study
  Country: GB (occurrence: GB)
  Receive Date: 20250618
  Receipt Date: 20250704
  Transmission Date: 20251021
  Serious: Yes (Other)
  Sender: NOVARTIS
  Company Number: GB-002147023-NVSC2022GB107709

PATIENT
  Sex: Male
  Weight: 37 kg

DRUGS (12)
  1. MEKINIST [Suspect]
     Active Substance: TRAMETINIB DIMETHYL SULFOXIDE
     Indication: Neurofibroma
     Dosage: 18 ML, QD
     Route: 048
     Dates: start: 20190103
  2. MEKINIST [Suspect]
     Active Substance: TRAMETINIB DIMETHYL SULFOXIDE
     Dosage: 0.55 MG, QD
     Route: 048
     Dates: start: 20200211
  3. MEKINIST [Suspect]
     Active Substance: TRAMETINIB DIMETHYL SULFOXIDE
     Dosage: 0.5 MG, QD
     Route: 048
  4. MEKINIST [Suspect]
     Active Substance: TRAMETINIB DIMETHYL SULFOXIDE
     Dosage: 775 UG, QD
     Route: 048
  5. MEKINIST [Suspect]
     Active Substance: TRAMETINIB DIMETHYL SULFOXIDE
     Dosage: 800 UG, QD
     Route: 048
  6. MEKINIST [Suspect]
     Active Substance: TRAMETINIB DIMETHYL SULFOXIDE
     Dosage: 0.9 MG, QD
     Route: 048
  7. MEKINIST [Suspect]
     Active Substance: TRAMETINIB DIMETHYL SULFOXIDE
     Dosage: 0.95 MG, QD (STRENGTH: 19 ML)
     Route: 048
  8. MEKINIST [Suspect]
     Active Substance: TRAMETINIB DIMETHYL SULFOXIDE
     Dosage: 0.9 MG, QD (STRENGTH: 18ML, PEDIATRIC DOSE 26-29 KG) (REQUEST DATE: 21 MAY 2025, EXPECTED TREATMENT
     Route: 048
  9. MEKINIST [Suspect]
     Active Substance: TRAMETINIB DIMETHYL SULFOXIDE
     Dosage: 10 ML, QD (TEMPORARILY REDUCED HIS INTAKE TO 10MLS DAILY)
     Route: 048
  10. NITROFURANTOIN [Concomitant]
     Active Substance: NITROFURANTOIN
     Indication: Urinary tract infection
     Dosage: 6 ML, QD (SUSPENSION)
     Route: 048
     Dates: start: 202503
  11. GABAPENTIN [Concomitant]
     Active Substance: GABAPENTIN
     Indication: Pain
     Route: 048
  12. MELATONIN [Concomitant]
     Active Substance: MELATONIN
     Indication: Poor quality sleep
     Route: 048

REACTIONS (7)
  - Hypertension [Recovering/Resolving]
  - Skin infection [Unknown]
  - Condition aggravated [Unknown]
  - Paronychia [Unknown]
  - Weight increased [Unknown]
  - Pain [Recovered/Resolved]
  - Weight decreased [Recovering/Resolving]

NARRATIVE: CASE EVENT DATE: 20250508
